FAERS Safety Report 8589789-8 (Version None)
Quarter: 2012Q3

REPORT INFORMATION
  Report Type: 
  Country: None (occurrence: None)
  Receive Date: 20120813
  Receipt Date: 20120731
  Transmission Date: 20120928
  Serious: No
  Sender: FDA-Public Use
  Company Number: US-ASTRAZENECA-2012SE54581

PATIENT
  Age: 73 Year
  Sex: Female
  Weight: 73.5 kg

DRUGS (16)
  1. MIRAPEX [Concomitant]
     Route: 048
  2. ALDACTONE [Concomitant]
     Route: 048
  3. CRESTOR [Suspect]
     Route: 048
  4. COREG [Concomitant]
     Route: 048
  5. MOBIC [Concomitant]
     Route: 048
  6. PROZAC [Concomitant]
     Route: 048
  7. DIOVAN [Concomitant]
     Route: 048
  8. AMBIEN [Concomitant]
     Indication: SLEEP DISORDER
     Dosage: 10 MG, 1 TAB EACH NIGHT AT BEDTIME
     Route: 048
  9. RANITIDINE HCL [Concomitant]
     Route: 048
  10. CLEOCIN HYDROCHLORIDE [Concomitant]
     Dosage: 300MG, 4 CAPSULE, 1 HRS BEFORE DENTAL APPT
     Route: 048
  11. ATIVAN [Concomitant]
     Dosage: 1 MG, EVERY 6 HRS, AS NEEDED
     Route: 048
  12. PREMARIN [Concomitant]
     Dosage: 1 DAILY
     Route: 048
  13. ASPIRIN [Concomitant]
     Dosage: 81 MG CHEW, 1 QD
     Route: 048
  14. ESTRACE [Concomitant]
     Route: 048
  15. HYDROCODONE BITARTRATE + ACETAMINOPHEN [Concomitant]
     Indication: PAIN
     Dosage: 7.5-650 MG, 1-2 TABLET, EVERY 4 HRS AS NEEDED
     Route: 048
  16. LEVEMIR [Concomitant]
     Dosage: 100 UNIT/ML, 3ML, 45 UNITS, EVERY DAY
     Route: 058

REACTIONS (6)
  - ABDOMINAL PAIN [None]
  - FIBROMYALGIA [None]
  - CARDIAC FAILURE CONGESTIVE [None]
  - HYPERLIPIDAEMIA [None]
  - FLANK PAIN [None]
  - TYPE 2 DIABETES MELLITUS [None]
